FAERS Safety Report 5696624-4 (Version None)
Quarter: 2008Q2

REPORT INFORMATION
  Report Type: 
  Country: None (occurrence: None)
  Receive Date: 20080408
  Receipt Date: 20061002
  Transmission Date: 20081010
  Serious: Yes (Hospitalization)
  Sender: FDA-Public Use
  Company Number: US-BAYER-US-2005-021952

PATIENT
  Age: 37 Year
  Sex: Female
  Weight: 54 kg

DRUGS (1)
  1. YASMIN [Suspect]
     Indication: ORAL CONTRACEPTION
     Route: 048
     Dates: start: 20041109, end: 20050801

REACTIONS (3)
  - BACTERIURIA [None]
  - HAEMORRHOIDS [None]
  - PREGNANCY ON ORAL CONTRACEPTIVE [None]
